FAERS Safety Report 8591145 (Version 7)
Quarter: 2013Q2

REPORT INFORMATION
  Report Type: Spontaneous
  Country: US (occurrence: US)
  Receive Date: 20120601
  Receipt Date: 20130419
  Transmission Date: 20140414
  Serious: Yes (Hospitalization, Disabling, Other)
  Sender: FDA-Public Use
  Company Number: US-MERCK-1205USA04996

PATIENT
  Sex: Female

DRUGS (8)
  1. FOSAMAX [Suspect]
     Indication: OSTEOPOROSIS
     Dosage: 70 MG, QW
     Route: 048
     Dates: start: 200205, end: 201102
  2. FOSAMAX [Suspect]
     Dosage: UNK
     Route: 048
     Dates: start: 2001, end: 2010
  3. ALENDRONATE SODIUM [Suspect]
     Dosage: UNK
     Route: 048
     Dates: start: 200205, end: 201102
  4. MINERALS (UNSPECIFIED) (+) VITAMINS (UNSPECIFIED) [Concomitant]
     Indication: OSTEOPOROSIS
     Dosage: UNK
     Dates: start: 2000
  5. CALCIUM MAGNESIUM ZINC [Concomitant]
     Dosage: UNK
     Dates: start: 2002
  6. VITAMIN D (UNSPECIFIED) [Concomitant]
     Dosage: 400 IU, QD
  7. PYRIDOXINE [Concomitant]
     Dosage: UNK
  8. CALCIUM (UNSPECIFIED) [Concomitant]
     Indication: OSTEOPOROSIS
     Dosage: 1200 MG, QD

REACTIONS (18)
  - Femur fracture [Not Recovered/Not Resolved]
  - Open reduction of fracture [Unknown]
  - Pancreatitis [Unknown]
  - Renal cancer [Unknown]
  - Nephrectomy [Unknown]
  - Respiratory tract infection [Unknown]
  - Fall [Unknown]
  - Respiratory distress [Unknown]
  - Confusional state [Unknown]
  - Pneumonia [Unknown]
  - Emphysema [Unknown]
  - Blood cholesterol increased [Unknown]
  - Hypertension [Unknown]
  - Multiple fractures [Unknown]
  - Osteopenia [Unknown]
  - Spinal osteoarthritis [Unknown]
  - Urine calcium increased [Unknown]
  - Abdominal pain [Unknown]
